FAERS Safety Report 7894059-7 (Version None)
Quarter: 2011Q4

REPORT INFORMATION
  Report Type: 
  Country: None (occurrence: None)
  Receive Date: 20111104
  Receipt Date: 20111026
  Transmission Date: 20120403
  Serious: Yes (Hospitalization)
  Sender: FDA-Public Use
  Company Number: FR-JNJFOC-20111011928

PATIENT
  Sex: Female

DRUGS (19)
  1. REPAGLINIDE [Concomitant]
     Dosage: 1-1-1
  2. RISPERDAL [Concomitant]
     Dates: start: 20110317, end: 20110323
  3. BETASERC (BETAHISTINE HYDROCHLORIDE) [Concomitant]
     Dates: start: 20110323
  4. ACETAMINOPHEN [Concomitant]
  5. ECONAZOLE SANDOZ [Concomitant]
     Dates: end: 20110327
  6. CANDESARTAN CILEXETIL [Suspect]
     Indication: PRODUCT USED FOR UNKNOWN INDICATION
     Dosage: INITIATED A LONG TIME AGO
     Route: 048
  7. COLCHICINE [Suspect]
     Indication: PRODUCT USED FOR UNKNOWN INDICATION
     Dosage: INITIATED A LONG TIME AGO
     Route: 048
  8. ATACAND [Concomitant]
     Dates: start: 20110317, end: 20110323
  9. DURAGESIC-100 [Suspect]
     Dosage: ONE 12.5 PATCH AND ONE 25 PATCH
     Route: 062
     Dates: start: 20110314, end: 20110318
  10. ORAMORPH SR [Suspect]
     Indication: ARTHRALGIA
     Route: 048
     Dates: start: 20110323
  11. BETASERC (BETAHISTINE HYDROCHLORIDE) [Concomitant]
     Dates: end: 20110317
  12. DURAGESIC-100 [Suspect]
     Indication: ARTHRALGIA
     Route: 062
     Dates: start: 20110323
  13. ESCITALOPRAM OXALATE [Suspect]
     Indication: DEPRESSION
     Dosage: INITIATED A LONG TIME AGO
     Route: 048
  14. ZOLPIDEM [Concomitant]
     Dates: start: 20110317, end: 20110323
  15. DURAGESIC-100 [Suspect]
     Route: 062
     Dates: start: 20110301, end: 20110313
  16. GLUCOPHAGE [Suspect]
     Indication: TYPE 2 DIABETES MELLITUS
     Dosage: INITIATED A LONG TIME AGO
     Route: 048
     Dates: end: 20110318
  17. ORAMORPH SR [Suspect]
     Dosage: 8 DOSES THREE TIMES A DAY
     Route: 048
     Dates: start: 20110310, end: 20110318
  18. PRAZEPAM [Suspect]
     Indication: ANXIETY
     Route: 048
     Dates: end: 20110318
  19. TRANSIPEG [Concomitant]
     Dosage: 1-1-1

REACTIONS (2)
  - FALL [None]
  - CONFUSIONAL STATE [None]
